FAERS Safety Report 15208264 (Version 3)
Quarter: 2018Q4

REPORT INFORMATION
  Report Type: Spontaneous
  Country: BE (occurrence: BE)
  Receive Date: 20180727
  Receipt Date: 20181001
  Transmission Date: 20190204
  Serious: Yes (Other)
  Sender: FDA-Public Use
  Company Number: PHHY2018BE053582

PATIENT
  Age: 24 Year
  Sex: Female

DRUGS (11)
  1. PERINDOPRIL [Suspect]
     Active Substance: PERINDOPRIL
     Indication: OCCUPATIONAL EXPOSURE TO PRODUCT
     Dosage: AIRBORNE EXPOSURE DURING HER WORK AS A PHARMACY ASSISTANT, WHICH INVOLVED BREAKING AND CRUSHING DIFF
     Route: 061
  2. SOTALOL. [Suspect]
     Active Substance: SOTALOL
     Indication: OCCUPATIONAL EXPOSURE TO PRODUCT
     Dosage: AIRBORNE EXPOSURE DURING HER WORK AS A PHARMACY ASSISTANT, WHICH INVOLVED BREAKING AND CRUSHING DIFF
     Route: 061
  3. BISOPROLOL FUMARATE. [Suspect]
     Active Substance: BISOPROLOL FUMARATE
     Indication: OCCUPATIONAL EXPOSURE TO PRODUCT
     Dosage: AIRBORNE EXPOSURE DURING HER WORK AS A PHARMACY ASSISTANT, WHICH INVOLVED BREAKING AND CRUSHING DIFF
     Route: 061
  4. ENALAPRIL MALEATE. [Suspect]
     Active Substance: ENALAPRIL MALEATE
     Indication: OCCUPATIONAL EXPOSURE TO PRODUCT
     Dosage: AIRBORNE EXPOSURE DURING HER WORK AS A PHARMACY ASSISTANT, WHICH INVOLVED BREAKING AND CRUSHING DIFF
     Route: 061
  5. LORMETAZEPAM [Suspect]
     Active Substance: LORMETAZEPAM
     Indication: OCCUPATIONAL EXPOSURE TO PRODUCT
     Dosage: AIRBORNE EXPOSURE DURING HER WORK AS A PHARMACY ASSISTANT, WHICH INVOLVED BREAKING AND CRUSHING DIFF
     Route: 061
  6. TETRAZEPAM [Suspect]
     Active Substance: TETRAZEPAM
     Indication: OCCUPATIONAL EXPOSURE TO PRODUCT
     Dosage: AIRBORNE EXPOSURE DURING HER WORK AS A PHARMACY ASSISTANT, WHICH INVOLVED BREAKING AND CRUSHING DIFF
     Route: 061
  7. METOPROLOL. [Suspect]
     Active Substance: METOPROLOL
     Indication: OCCUPATIONAL EXPOSURE TO PRODUCT
     Dosage: AIRBORNE EXPOSURE DURING HER WORK AS A PHARMACY ASSISTANT, WHICH INVOLVED BREAKING AND CRUSHING DIFF
     Route: 061
  8. ALPRAZOLAM. [Suspect]
     Active Substance: ALPRAZOLAM
     Indication: OCCUPATIONAL EXPOSURE TO PRODUCT
     Dosage: UNK
     Route: 065
  9. LISINOPRIL AND HYDROCHLOROTHIAZIDE [Suspect]
     Active Substance: HYDROCHLOROTHIAZIDE\LISINOPRIL
     Indication: OCCUPATIONAL EXPOSURE TO PRODUCT
     Dosage: AIRBORNE EXPOSURE DURING HER WORK AS A PHARMACY ASSISTANT, WHICH INVOLVED BREAKING AND CRUSHING DIFF
     Route: 061
  10. PROPRANOLOL [Suspect]
     Active Substance: PROPRANOLOL HYDROCHLORIDE
     Indication: OCCUPATIONAL EXPOSURE TO PRODUCT
     Dosage: AIRBORNE EXPOSURE DURING HER WORK AS A PHARMACY ASSISTANT, WHICH INVOLVED BREAKING AND CRUSHING DIFF
     Route: 061
  11. CAPTOPRIL. [Suspect]
     Active Substance: CAPTOPRIL
     Indication: OCCUPATIONAL EXPOSURE TO PRODUCT
     Dosage: UNK
     Route: 065

REACTIONS (8)
  - Occupational exposure to product [Unknown]
  - Erythema [Unknown]
  - Localised oedema [Unknown]
  - Blepharitis [Unknown]
  - Skin test positive [Unknown]
  - Wrong technique in product usage process [Unknown]
  - Pruritus [Unknown]
  - Skin exfoliation [Unknown]

NARRATIVE: CASE EVENT DATE: 2012
